FAERS Safety Report 5482246-7 (Version None)
Quarter: 2007Q4

REPORT INFORMATION
  Report Type: 
  Country: None (occurrence: None)
  Receive Date: 20071011
  Receipt Date: 20070816
  Transmission Date: 20080405
  Serious: Yes (Other)
  Sender: FDA-Public Use
  Company Number: US-PURDUE-USA_2007_0029017

PATIENT
  Sex: Male
  Weight: 91 kg

DRUGS (2)
  1. OXYCONTIN [Suspect]
     Indication: BACK PAIN
     Dates: start: 19960101
  2. TYLOX [Concomitant]

REACTIONS (6)
  - DIZZINESS [None]
  - DRUG DEPENDENCE [None]
  - FEELING OF BODY TEMPERATURE CHANGE [None]
  - HYPERHIDROSIS [None]
  - STOMACH DISCOMFORT [None]
  - SURGERY [None]
